FAERS Safety Report 9881827 (Version 1)
Quarter: 2014Q1

REPORT INFORMATION
  Report Type: Spontaneous
  Country: DE (occurrence: DE)
  Receive Date: 20140207
  Receipt Date: 20140207
  Transmission Date: 20141002
  Serious: Yes (Disabling)
  Sender: FDA-Public Use
  Company Number: DE-PFIZER INC-2014033713

PATIENT
  Age: 68 Year
  Sex: Male

DRUGS (2)
  1. RAMILICH [Suspect]
     Indication: HYPERTENSION
     Dosage: 2.5 MG, TWICE DAILY
     Route: 048
     Dates: start: 201306
  2. OMEPRAZOLE [Concomitant]

REACTIONS (5)
  - Respiratory disorder [Unknown]
  - Swollen tongue [Unknown]
  - Dysphagia [Unknown]
  - Paraesthesia [Unknown]
  - Erythema [Unknown]
